FAERS Safety Report 10372946 (Version 2)
Quarter: 2014Q3

REPORT INFORMATION
  Report Type: Spontaneous
  Country: US (occurrence: US)
  Receive Date: 20140808
  Receipt Date: 20140808
  Transmission Date: 20150326
  Serious: Yes (Hospitalization)
  Sender: FDA-Public Use
  Company Number: US-BRISTOL-MYERS SQUIBB COMPANY-19833219

PATIENT
  Age: 58 Year
  Sex: Female

DRUGS (27)
  1. LEVAQUIN [Concomitant]
     Active Substance: LEVOFLOXACIN
  2. NOVOLIN [Concomitant]
     Active Substance: INSULIN HUMAN
     Dosage: 1 DF : 5 UNITS
  3. PRAVASTATIN SODIUM. [Concomitant]
     Active Substance: PRAVASTATIN SODIUM
  4. PRILOSEC [Concomitant]
     Active Substance: OMEPRAZOLE MAGNESIUM
  5. ONGLYZA [Concomitant]
     Active Substance: SAXAGLIPTIN HYDROCHLORIDE
  6. FENOFIBRATE. [Concomitant]
     Active Substance: FENOFIBRATE
  7. DOXAZOSIN [Concomitant]
     Active Substance: DOXAZOSIN\DOXAZOSIN MESYLATE
  8. OMEPRAZOLE. [Concomitant]
     Active Substance: OMEPRAZOLE
     Dosage: 1 DF = 20 UNITS
  9. ASPIRIN. [Concomitant]
     Active Substance: ASPIRIN
  10. CYANOCOBALAMIN. [Concomitant]
     Active Substance: CYANOCOBALAMIN
  11. BUMETANIDE. [Concomitant]
     Active Substance: BUMETANIDE
  12. BURINEX [Concomitant]
     Active Substance: BUMETANIDE
  13. GLYBURIDE. [Concomitant]
     Active Substance: GLYBURIDE
  14. CARVEDILOL. [Concomitant]
     Active Substance: CARVEDILOL
  15. KLARON [Concomitant]
     Active Substance: SULFACETAMIDE SODIUM
  16. SPRYCEL (CML) TABS 20 MG [Suspect]
     Active Substance: DASATINIB
     Indication: CHRONIC MYELOID LEUKAEMIA
     Dosage: INTERRUPTED 21-NOV-2013; RESATARTED 05-DEC-2013
     Route: 048
     Dates: start: 20100825
  17. FERROUS SULFATE [Concomitant]
     Active Substance: FERROUS SULFATE\FERROUS SULFATE, DRIED
  18. LEVEMIR [Concomitant]
     Active Substance: INSULIN DETEMIR
     Dosage: 1 DF : 60 UNITS NOS.?1 DF : 100U/ML.
     Route: 058
  19. LISINOPRIL. [Concomitant]
     Active Substance: LISINOPRIL
  20. CARVEDILOL. [Concomitant]
     Active Substance: CARVEDILOL
  21. ALBUTEROL. [Concomitant]
     Active Substance: ALBUTEROL
  22. SAXAGLIPTIN [Concomitant]
     Active Substance: SAXAGLIPTIN
  23. POTASSIUM [Concomitant]
     Active Substance: POTASSIUM
  24. TRICOR [Concomitant]
     Active Substance: FENOFIBRATE
     Dosage: 1 DF= 48 UNITS
  25. AMITRIPTYLINE [Concomitant]
     Active Substance: AMITRIPTYLINE
  26. SYMBICORT [Concomitant]
     Active Substance: BUDESONIDE\FORMOTEROL FUMARATE DIHYDRATE
  27. METFORMIN [Concomitant]
     Active Substance: METFORMIN HYDROCHLORIDE
     Dosage: 1DF=500UNITS

REACTIONS (1)
  - Pleural effusion [Unknown]

NARRATIVE: CASE EVENT DATE: 201310
